FAERS Safety Report 8583762-1 (Version None)
Quarter: 2012Q3

REPORT INFORMATION
  Report Type: 
  Country: None (occurrence: None)
  Receive Date: 20120810
  Receipt Date: 20120725
  Transmission Date: 20120928
  Serious: Yes (Hospitalization)
  Sender: FDA-Public Use
  Company Number: JP-009507513-1208JPN000660

PATIENT

DRUGS (4)
  1. ALENDRONATE SODIUM [Suspect]
     Dosage: 35 MG, QW
     Route: 048
     Dates: start: 20080109, end: 20110827
  2. ALENDRONATE SODIUM [Suspect]
     Indication: OSTEOPOROSIS
     Dosage: 5 MG, QD
     Route: 048
     Dates: start: 20030101, end: 20080108
  3. IMURAN [Concomitant]
     Indication: AUTOIMMUNE HEPATITIS
     Dosage: 50 MG, QD
     Route: 048
     Dates: start: 20000821
  4. PREDNISOLONE [Concomitant]
     Indication: AUTOIMMUNE HEPATITIS
     Dosage: 5 MG, QD
     Route: 048
     Dates: start: 20000821

REACTIONS (1)
  - FEMUR FRACTURE [None]
